FAERS Safety Report 6267884-6 (Version None)
Quarter: 2009Q3

REPORT INFORMATION
  Report Type: 
  Country: None (occurrence: None)
  Receive Date: 20090710
  Receipt Date: 20090710
  Transmission Date: 20100115
  Serious: No
  Sender: FDA-Public Use
  Company Number: None

PATIENT
  Age: 49 Year
  Sex: Female
  Weight: 47.6277 kg

DRUGS (2)
  1. ZICAM COLD REMEDY NASAL GEL ZICAM LLC [Suspect]
     Indication: NASOPHARYNGITIS
     Dosage: ONE PUMP EVERY 2 HOURS NASAL
     Route: 045
     Dates: start: 20070901, end: 20090301
  2. ZICAM COLD REMEDY NASAL GEL ZICAM LLC [Suspect]
     Indication: PROPHYLAXIS
     Dosage: ONE PUMP EVERY 2 HOURS NASAL
     Route: 045
     Dates: start: 20070901, end: 20090301

REACTIONS (1)
  - ANOSMIA [None]
